FAERS Safety Report 21358035 (Version 4)
Quarter: 2024Q1

REPORT INFORMATION
  Report Type: Spontaneous
  Country: PK (occurrence: PK)
  Receive Date: 20220921
  Receipt Date: 20240318
  Transmission Date: 20240410
  Serious: Yes (Hospitalization, Other)
  Sender: FDA-Public Use
  Company Number: PK-PFIZER INC-2019481042

PATIENT
  Age: 27 Year
  Sex: Female
  Weight: 58 kg

DRUGS (22)
  1. ENBREL [Suspect]
     Active Substance: ETANERCEPT
     Indication: Psoriatic arthropathy
     Dosage: 50 MG (EVERY 10 DAYS)
     Route: 058
     Dates: start: 20180324
  2. ENBREL [Suspect]
     Active Substance: ETANERCEPT
     Dosage: 50 MG, WEEKLY
     Route: 058
     Dates: start: 20191105
  3. ENBREL [Suspect]
     Active Substance: ETANERCEPT
     Dosage: 50 MG, WEEKLY
     Route: 058
     Dates: start: 20200117
  4. ENBREL [Suspect]
     Active Substance: ETANERCEPT
     Dosage: 50 MG, WEEKLY
     Route: 058
     Dates: start: 202202
  5. NEORAL [Concomitant]
     Active Substance: CYCLOSPORINE
     Dosage: 25 MG
  6. NEORAL [Concomitant]
     Active Substance: CYCLOSPORINE
     Dosage: 1 MILLIGRAM  (ILLEGIBLE INFORMATION)
  7. FOLIC ACID [Concomitant]
     Active Substance: FOLIC ACID
     Dosage: 5 MG, DAILY
  8. CAC [Concomitant]
     Dosage: UNK, 1X/DAY
  9. XOBIX [Concomitant]
     Dosage: 15 MG (AT NIGHT AFTER MEAL AS REQUIRED)
  10. XOBIX [Concomitant]
     Dosage: 1 DF (1X TABLETS, AS NEEDED, AFTER MEAL, FOR 4 WEEKS, 1 CAP IN MORNING, BEFORE MEAL AS PER NEED)
  11. XOBIX [Concomitant]
     Dosage: 1 TAB EVENING AFTER MEAL FOR 2 WEEKS
  12. SELANZ [Concomitant]
     Dosage: 30 MG
  13. CAL [Concomitant]
     Dosage: UNK, DAILY (1000 PLUS DAILY)
  14. Dolgina [Concomitant]
     Dosage: 30 MG, DAILY (BEFORE BREAKFAST AS REQUIRED)
  15. Sangobion [Concomitant]
     Dosage: 1 DF, 1X/DAY (TAKE 1 TABLET ONCE A DAY)
  16. ESCITALOPRAM OXALATE [Concomitant]
     Active Substance: ESCITALOPRAM OXALATE
     Dosage: 10 MG (TAKE 1/2 TABLET IN NIGHT AT 9PM THEN TAKE 1 DAILY FOR 10DAYS)
  17. Risek [Concomitant]
     Dosage: 20 MG (1+0+0+0 BEFORE MEAL)
  18. DICLOFENAC SODIUM [Concomitant]
     Active Substance: DICLOFENAC\DICLOFENAC SODIUM
     Dosage: UNK, 3X/DAY (APPLY LOCALLY. THREE TIMES A DAY)
  19. ALPRAZOLAM [Concomitant]
     Active Substance: ALPRAZOLAM
     Dosage: UNK (5MG HALF TABLET AT NIGHT 10 PM FOR 10DAYS)
  20. CIPRALEX [Concomitant]
     Active Substance: ESCITALOPRAM OXALATE
     Dosage: UNK (HALF TABLET AT NIGHT 9 PM,10DAYS ONE AT NIGHT 9PM)
  21. VAXIGRIP [Concomitant]
     Active Substance: INFLUENZA VIRUS VACCINE
     Dosage: 5ML : 1 X INJ(IM), IMMEDIATELY FOR 1 DAYS
     Route: 030
  22. Sunny d [Concomitant]
     Dosage: 200000 1 CAPSULE, ONCE IN TWO MONTHS FOR 6 MONTHS

REACTIONS (13)
  - Joint swelling [Unknown]
  - Cough [Unknown]
  - Iron deficiency anaemia [Unknown]
  - Arthralgia [Unknown]
  - Influenza [Unknown]
  - Musculoskeletal stiffness [Recovered/Resolved]
  - Synovitis [Not Recovered/Not Resolved]
  - Blood creatine decreased [Recovering/Resolving]
  - Back pain [Unknown]
  - Dizziness [Unknown]
  - Off label use [Unknown]
  - Weight increased [Unknown]
  - Urinary tract infection [Unknown]

NARRATIVE: CASE EVENT DATE: 20180324
